FAERS Safety Report 13352832 (Version 4)
Quarter: 2017Q4

REPORT INFORMATION
  Report Type: Report from Study
  Country: GB (occurrence: GB)
  Receive Date: 20170320
  Receipt Date: 20171101
  Transmission Date: 20180320
  Serious: Yes (Other)
  Sender: FDA-Public Use
  Company Number: GB-UCBSA-2017010223

PATIENT
  Sex: Male

DRUGS (2)
  1. CERTOLIZUMAB PEGOL [Suspect]
     Active Substance: CERTOLIZUMAB PEGOL
     Dosage: 200 MG, EV 2 WEEKS(QOW) (FROM WEEK 6)
     Route: 058
     Dates: start: 201412
  2. CERTOLIZUMAB PEGOL [Suspect]
     Active Substance: CERTOLIZUMAB PEGOL
     Indication: AXIAL SPONDYLOARTHRITIS
     Dosage: 400 MG, EV 2 WEEKS(QOW) (WEEK 0,2 AND 4)
     Route: 058
     Dates: start: 20141112, end: 201412

REACTIONS (3)
  - Infection [Unknown]
  - Influenza [Unknown]
  - Malaise [Unknown]
